FAERS Safety Report 7047506-7 (Version None)
Quarter: 2010Q4

REPORT INFORMATION
  Report Type: 
  Country: None (occurrence: None)
  Receive Date: 20101015
  Receipt Date: 20101006
  Transmission Date: 20110411
  Serious: Yes (Other)
  Sender: FDA-Public Use
  Company Number: JP-PFIZER INC-2010126985

PATIENT
  Age: 69 Year
  Sex: Female

DRUGS (5)
  1. LYRICA [Suspect]
     Indication: TRIGEMINAL NEURALGIA
     Dosage: 75 MG, 2X/DAY
     Route: 048
     Dates: start: 20100803, end: 20100827
  2. AMITRIPTYLINE HCL [Concomitant]
     Dosage: UNK
     Route: 048
  3. HYPEN [Concomitant]
     Dosage: UNK
     Route: 048
  4. DEPAKENE [Concomitant]
     Dosage: UNK
     Route: 048
  5. MARZULENE [Concomitant]
     Dosage: UNK
     Route: 048

REACTIONS (1)
  - EPISTAXIS [None]
